FAERS Safety Report 7623355-3 (Version None)
Quarter: 2011Q3

REPORT INFORMATION
  Report Type: 
  Country: None (occurrence: None)
  Receive Date: 20110720
  Receipt Date: 20110712
  Transmission Date: 20111222
  Serious: Yes (Other)
  Sender: FDA-Public Use
  Company Number: CA-JNJFOC-20110702503

PATIENT
  Age: 61 Year
  Sex: Female
  Weight: 65.77 kg

DRUGS (4)
  1. MORPHINE [Concomitant]
     Indication: HEADACHE
     Route: 065
  2. NICORETTE [Suspect]
     Indication: SMOKING CESSATION THERAPY
     Route: 055
     Dates: start: 20110101
  3. TOPAMAX [Concomitant]
     Indication: PRODUCT USED FOR UNKNOWN INDICATION
     Route: 065
  4. ALENDRONATE SODIUM [Concomitant]
     Indication: BONE DISORDER
     Route: 065

REACTIONS (2)
  - INCORRECT DRUG ADMINISTRATION DURATION [None]
  - DEPENDENCE [None]
